FAERS Safety Report 18071946 (Version 1)
Quarter: 2020Q3

REPORT INFORMATION
  Report Type: Spontaneous
  Country: US (occurrence: US)
  Receive Date: 20200724
  Receipt Date: 20200724
  Transmission Date: 20201103
  Serious: Yes (Other)
  Sender: FDA-Public Use
  Company Number: None

PATIENT
  Sex: Female

DRUGS (1)
  1. PROLIA [Suspect]
     Active Substance: DENOSUMAB
     Indication: SENILE OSTEOPOROSIS
     Dosage: SEE EVENT  TO ON HOLD?          OTHER FREQUENCY:EVERY 6 MONTHS;?
     Route: 058

REACTIONS (2)
  - Toothache [None]
  - Therapy interrupted [None]
